FAERS Safety Report 9971349 (Version 2)
Quarter: 2014Q1

REPORT INFORMATION
  Report Type: Report from Study
  Country: US (occurrence: US)
  Receive Date: 20140306
  Receipt Date: 20140306
  Transmission Date: 20141002
  Serious: No
  Sender: FDA-Public Use
  Company Number: US-ABBVIE-13P-163-1082116-00

PATIENT
  Age: 23 Year
  Sex: Male

DRUGS (4)
  1. HUMIRA [Suspect]
     Indication: ANKYLOSING SPONDYLITIS
     Dates: start: 20130409, end: 20130910
  2. AMITRIPTYLINE [Concomitant]
     Indication: INSOMNIA
  3. AMITRIPTYLINE [Concomitant]
  4. VITAMIN D3 [Concomitant]
     Indication: SUPPLEMENTATION THERAPY

REACTIONS (10)
  - Meniscus injury [Not Recovered/Not Resolved]
  - Nausea [Not Recovered/Not Resolved]
  - Migraine [Not Recovered/Not Resolved]
  - Vomiting [Not Recovered/Not Resolved]
  - Tuberculin test positive [Not Recovered/Not Resolved]
  - Decreased appetite [Not Recovered/Not Resolved]
  - Ankylosing spondylitis [Unknown]
  - Pain [Unknown]
  - Insomnia [Unknown]
  - Drug ineffective [Unknown]
